FAERS Safety Report 8203626-2 (Version None)
Quarter: 2012Q1

REPORT INFORMATION
  Report Type: 
  Country: None (occurrence: None)
  Receive Date: 20120313
  Receipt Date: 20120229
  Transmission Date: 20120608
  Serious: Yes (Other)
  Sender: FDA-Public Use
  Company Number: BR-AMGEN-BRASP2012014112

PATIENT
  Age: 40 Year
  Sex: Female
  Weight: 88.98 kg

DRUGS (4)
  1. ENBREL [Suspect]
     Indication: RHEUMATOID ARTHRITIS
     Dosage: 25 MG, UNSPECIFIED FREQUENCY
     Route: 058
     Dates: start: 20101001
  2. ENBREL [Suspect]
     Dosage: 25 MG, UNSPECIFIED FREQUENCY
     Route: 058
     Dates: start: 20110201, end: 20110901
  3. ENBREL [Suspect]
     Dosage: 50 MG, WEEKLY
     Route: 058
     Dates: start: 20120120
  4. CORTICORTEN [Concomitant]
     Dosage: 20 MG, 1X/DAY (ONE TABET DAILY)

REACTIONS (3)
  - OBESITY [None]
  - INJECTION SITE ERYTHEMA [None]
  - INJECTION SITE PAIN [None]
